FAERS Safety Report 19786653 (Version 1)
Quarter: 2021Q3

REPORT INFORMATION
  Report Type: Spontaneous
  Country: DE (occurrence: DE)
  Receive Date: 20210903
  Receipt Date: 20210903
  Transmission Date: 20211014
  Serious: Yes (Other)
  Sender: FDA-Public Use
  Company Number: DE-MYLANLABS-2021M1057488

PATIENT
  Age: 54 Year
  Sex: Male

DRUGS (1)
  1. FENTANYL. [Suspect]
     Active Substance: FENTANYL
     Indication: PRODUCT USED FOR UNKNOWN INDICATION
     Dosage: UNK

REACTIONS (7)
  - Bradykinesia [Unknown]
  - Dysarthria [Unknown]
  - Somnolence [Unknown]
  - Drug abuse [Unknown]
  - Feeling abnormal [Unknown]
  - Emotional distress [Unknown]
  - Personality change [Unknown]
